FAERS Safety Report 23271398 (Version 1)
Quarter: 2023Q4

REPORT INFORMATION
  Report Type: Spontaneous
  Country: CN (occurrence: CN)
  Receive Date: 20231207
  Receipt Date: 20231207
  Transmission Date: 20240109
  Serious: Yes (Hospitalization)
  Sender: FDA-Public Use
  Company Number: CN-JNJFOC-20231181394

PATIENT
  Age: 67 Year
  Sex: Male
  Weight: 60 kg

DRUGS (5)
  1. DARZALEX [Suspect]
     Active Substance: DARATUMUMAB
     Indication: Plasma cell myeloma
     Dosage: NS 500ML IVD ST (STARTING WITH 200ML 50ML/HOUR, UP BY 100ML/HOUR IF NO RESPONSE, WITH A MAXIMUM OF 2
     Route: 041
     Dates: start: 20220929, end: 20220930
  2. DEXAMETHASONE [Suspect]
     Active Substance: DEXAMETHASONE
     Indication: Plasma cell myeloma
     Dosage: + NS 50ML IVD QD] WAS ADMINISTERED
     Route: 065
  3. DEXAMETHASONE SODIUM PHOSPHATE [Concomitant]
     Active Substance: DEXAMETHASONE PHOSPHATE\DEXAMETHASONE SODIUM PHOSPHATE
     Dosage: + NS 50ML IVD ST
     Route: 065
  4. LORATADINE [Concomitant]
     Active Substance: LORATADINE
     Route: 048
  5. COMPOUND PARACETAMOL [Concomitant]
     Route: 048

REACTIONS (1)
  - Immune-mediated lung disease [Recovering/Resolving]

NARRATIVE: CASE EVENT DATE: 20220930
